FAERS Safety Report 15067984 (Version 1)
Quarter: 2018Q2

REPORT INFORMATION
  Report Type: Report from Study
  Country: CA (occurrence: CA)
  Receive Date: 20180626
  Receipt Date: 20180626
  Transmission Date: 20180711
  Serious: Yes (Other)
  Sender: FDA-Public Use
  Company Number: CA-JNJFOC-20180302874

PATIENT
  Age: 23 Year
  Sex: Female
  Weight: 106 kg

DRUGS (2)
  1. REMICADE [Suspect]
     Active Substance: INFLIXIMAB
     Indication: CROHN^S DISEASE
     Dosage: RECEIVED 91ST DOSE ON 07-MAY-2018
     Route: 042
     Dates: start: 20070629
  2. REMICADE [Suspect]
     Active Substance: INFLIXIMAB
     Indication: CROHN^S DISEASE
     Route: 042
     Dates: start: 20101123

REACTIONS (6)
  - Off label use [Unknown]
  - Product use issue [Unknown]
  - Infection [Recovered/Resolved]
  - Cellulitis [Recovering/Resolving]
  - Abdominal pain [Unknown]
  - Cutaneous lupus erythematosus [Not Recovered/Not Resolved]

NARRATIVE: CASE EVENT DATE: 20070629
